FAERS Safety Report 6610334-8 (Version None)
Quarter: 2010Q1

REPORT INFORMATION
  Report Type: 
  Country: None (occurrence: None)
  Receive Date: 20100302
  Receipt Date: 20100222
  Transmission Date: 20100710
  Serious: Yes (Life-Threatening, Other)
  Sender: FDA-Public Use
  Company Number: GXBR2010US00591

PATIENT
  Sex: Female
  Weight: 53.061 kg

DRUGS (11)
  1. TIZANIDINE HYDROCHLORIDE TABLETS (NGX) [Suspect]
     Indication: MUSCLE SPASTICITY
     Dosage: 2 MG, QD
     Route: 048
     Dates: start: 20091230, end: 20100107
  2. AVALIDE [Concomitant]
  3. ZOLPIDEM [Concomitant]
  4. MIRALAX [Concomitant]
  5. VYTORIN [Concomitant]
  6. TRICOR [Concomitant]
  7. FEMARA [Concomitant]
  8. ALENDRONATE SODIUM [Concomitant]
  9. OMEPRAZOLE [Concomitant]
  10. CARDIZEM [Concomitant]
  11. LEXAPRO [Concomitant]

REACTIONS (1)
  - BLISTER [None]
